FAERS Safety Report 6304042-0 (Version None)
Quarter: 2009Q3

REPORT INFORMATION
  Report Type: 
  Country: None (occurrence: None)
  Receive Date: 20090810
  Receipt Date: 20090729
  Transmission Date: 20100115
  Serious: Yes (Other)
  Sender: FDA-Public Use
  Company Number: US-PFIZER INC-2009232891

PATIENT
  Sex: Female
  Weight: 63.492 kg

DRUGS (3)
  1. LIPITOR [Suspect]
     Indication: HYPERLIPIDAEMIA
     Dosage: 10 MG, 1X/DAY
  2. SYNTHROID [Concomitant]
     Indication: THYROID DISORDER
  3. ESTRATEST H.S. [Concomitant]

REACTIONS (6)
  - COUGH [None]
  - FATIGUE [None]
  - HAEMATOCRIT DECREASED [None]
  - HIATUS HERNIA [None]
  - MALAISE [None]
  - PALPITATIONS [None]
